FAERS Safety Report 6669469-6 (Version None)
Quarter: 2010Q2

REPORT INFORMATION
  Report Type: 
  Country: None (occurrence: None)
  Receive Date: 20100406
  Receipt Date: 20100325
  Transmission Date: 20101027
  Serious: Yes (Hospitalization)
  Sender: FDA-Public Use
  Company Number: PHHY2009DK11820

PATIENT
  Sex: Female

DRUGS (4)
  1. OXCARBAZEPINE [Suspect]
     Indication: PARTIAL SEIZURES
     Dosage: 1200 MG/DAY
  2. OXCARBAZEPINE [Suspect]
     Dosage: 1500 MG/DAY
  3. OXCARBAZEPINE [Suspect]
     Dosage: 2200 MG/DAY
  4. OXCARBAZEPINE [Suspect]
     Dosage: 1200 MG/DAY

REACTIONS (4)
  - ANTICONVULSANT DRUG LEVEL DECREASED [None]
  - DRUG EXPOSURE DURING PREGNANCY [None]
  - EPILEPSY [None]
  - GRAND MAL CONVULSION [None]
